FAERS Safety Report 24813574 (Version 1)
Quarter: 2025Q1

REPORT INFORMATION
  Report Type: Spontaneous
  Country: BR (occurrence: BR)
  Receive Date: 20250107
  Receipt Date: 20250107
  Transmission Date: 20250409
  Serious: Yes (Hospitalization)
  Sender: PURACAP PHARMACEUTICAL LLC
  Company Number: BR-PURACAP-BR-2024EPCLIT01615

PATIENT
  Sex: Female

DRUGS (1)
  1. ERGOCALCIFEROL [Suspect]
     Active Substance: ERGOCALCIFEROL
     Indication: Vitamin supplementation
     Route: 065

REACTIONS (4)
  - Hypoparathyroidism [Recovering/Resolving]
  - Toxicity to various agents [Recovering/Resolving]
  - Hypercalcaemia [Recovering/Resolving]
  - Overdose [Unknown]
